FAERS Safety Report 7258914-3 (Version None)
Quarter: 2011Q1

REPORT INFORMATION
  Report Type: 
  Country: None (occurrence: None)
  Receive Date: 20110129
  Receipt Date: 20100709
  Transmission Date: 20110831
  Serious: No
  Sender: FDA-Public Use
  Company Number: US-ABBOTT-10P-163-0651205-00

PATIENT
  Sex: Female

DRUGS (9)
  1. SEROQUEL [Concomitant]
  2. PEPCID [Concomitant]
  3. VISTARIL [Concomitant]
  4. HUMIRA [Suspect]
     Dates: start: 20090501
  5. QUESTRAN [Concomitant]
  6. CLARINEX [Concomitant]
  7. CYMBALTA [Concomitant]
  8. HUMIRA [Suspect]
     Indication: CROHN'S DISEASE
     Route: 058
     Dates: start: 20080201, end: 20090501
  9. LUNESTA [Concomitant]

REACTIONS (4)
  - DRUG INEFFECTIVE [None]
  - DRUG DOSE OMISSION [None]
  - INJECTION SITE PAIN [None]
  - DEVICE MALFUNCTION [None]
